FAERS Safety Report 6987456-5 (Version None)
Quarter: 2010Q3

REPORT INFORMATION
  Report Type: 
  Country: None (occurrence: None)
  Receive Date: 20100916
  Receipt Date: 20100907
  Transmission Date: 20110219
  Serious: Yes (Life-Threatening)
  Sender: FDA-Public Use
  Company Number: PHHY2010US07985

PATIENT
  Sex: Female

DRUGS (4)
  1. DIOVAN [Suspect]
     Dosage: 160 MG
     Dates: start: 20091001
  2. DIOVAN [Suspect]
     Dosage: 80 MG
  3. PLAVIX [Suspect]
  4. COCUTEN VITAMIN [Concomitant]

REACTIONS (14)
  - BURNING SENSATION [None]
  - DISCOMFORT [None]
  - DRY MOUTH [None]
  - EMOTIONAL DISTRESS [None]
  - ERYTHEMA [None]
  - FEELING ABNORMAL [None]
  - FEELING COLD [None]
  - HYPERTENSION [None]
  - INCORRECT DOSE ADMINISTERED [None]
  - LIP DRY [None]
  - PAIN [None]
  - PRURITUS [None]
  - SCRATCH [None]
  - TEMPERATURE INTOLERANCE [None]
